FAERS Safety Report 9856504 (Version 3)
Quarter: 2014Q4

REPORT INFORMATION
  Report Type: Spontaneous
  Country: US (occurrence: US)
  Receive Date: 20140130
  Receipt Date: 20141006
  Transmission Date: 20150529
  Serious: Yes (Other)
  Sender: FDA-Public Use
  Company Number: US-009507513-1401USA014130

PATIENT
  Sex: Female

DRUGS (1)
  1. NUVARING [Suspect]
     Active Substance: ETHINYL ESTRADIOL\ETONOGESTREL
     Route: 067

REACTIONS (16)
  - Back pain [Unknown]
  - Headache [Not Recovered/Not Resolved]
  - Bone tuberculosis [Unknown]
  - Neck pain [Unknown]
  - Abdominal pain [Unknown]
  - Nausea [Unknown]
  - Stress [Not Recovered/Not Resolved]
  - Dysmenorrhoea [Unknown]
  - Chest pain [Unknown]
  - Constipation [Unknown]
  - Arthralgia [Unknown]
  - Joint stiffness [Unknown]
  - Cholecystectomy [Unknown]
  - Transient ischaemic attack [Not Recovered/Not Resolved]
  - Musculoskeletal stiffness [Unknown]
  - Peripheral coldness [Unknown]

NARRATIVE: CASE EVENT DATE: 2005
